FAERS Safety Report 16677680 (Version 5)
Quarter: 2019Q4

REPORT INFORMATION
  Report Type: Report from Study
  Country: DE (occurrence: DE)
  Receive Date: 20190807
  Receipt Date: 20191003
  Transmission Date: 20200122
  Serious: Yes (Other)
  Sender: FDA-Public Use
  Company Number: DE-KYOWAKIRIN-2019BKK012410

PATIENT

DRUGS (10)
  1. BUROSUMAB [Suspect]
     Active Substance: BUROSUMAB
     Dosage: 40 MG
     Route: 058
     Dates: start: 20190912
  2. BUROSUMAB [Suspect]
     Active Substance: BUROSUMAB
     Dosage: 20 MG
     Route: 058
     Dates: start: 20180807
  3. BUROSUMAB [Suspect]
     Active Substance: BUROSUMAB
     Indication: HEREDITARY HYPOPHOSPHATAEMIC RICKETS
     Dosage: UNKNOWN
     Route: 058
     Dates: start: 20190718, end: 20190718
  4. FOLIC ACID. [Concomitant]
     Active Substance: FOLIC ACID
     Indication: PRODUCT USED FOR UNKNOWN INDICATION
     Dosage: 5 MG, 24 H POST MTX INEJCTION
     Route: 065
  5. BUROSUMAB [Suspect]
     Active Substance: BUROSUMAB
     Dosage: 30 MG
     Route: 058
     Dates: start: 20190801, end: 2019
  6. IODINE. [Concomitant]
     Active Substance: IODINE
     Indication: LIMB INJURY
     Dosage: UNKNOWN, EVERY TWO DAYS
     Route: 065
     Dates: start: 20190711, end: 20190720
  7. IODINE. [Concomitant]
     Active Substance: IODINE
     Indication: WOUND INFECTION
  8. MTX [METHOTREXATE] [Concomitant]
     Active Substance: METHOTREXATE SODIUM
     Indication: PRODUCT USED FOR UNKNOWN INDICATION
     Dosage: 10 MG, ONCE WEEKLY
     Route: 058
  9. BUROSUMAB [Suspect]
     Active Substance: BUROSUMAB
     Dosage: 40 MG
     Route: 058
     Dates: start: 20190912
  10. HUMIRA [Concomitant]
     Active Substance: ADALIMUMAB
     Indication: PRODUCT USED FOR UNKNOWN INDICATION
     Dosage: 40 MG, EVERY 3 WEEKS
     Route: 058

REACTIONS (4)
  - Respiratory distress [Recovered/Resolved]
  - Fatigue [Not Recovered/Not Resolved]
  - Stress [Not Recovered/Not Resolved]
  - Headache [Not Recovered/Not Resolved]

NARRATIVE: CASE EVENT DATE: 201907
